FAERS Safety Report 18581514 (Version 1)
Quarter: 2020Q4

REPORT INFORMATION
  Report Type: Spontaneous
  Country: US (occurrence: US)
  Receive Date: 20201204
  Receipt Date: 20201204
  Transmission Date: 20210114
  Serious: No
  Sender: FDA-Public Use
  Company Number: US-ASSERTIO THERAPEUTICS, INC.-US-2019EGA001750

PATIENT
  Age: 45 Year
  Sex: Male

DRUGS (1)
  1. ZORVOLEX [Suspect]
     Active Substance: DICLOFENAC
     Indication: PAIN
     Dosage: 35 MG BY MOUTH THREE TIMES A DAY
     Route: 048
     Dates: end: 201912

REACTIONS (3)
  - Hyperhidrosis [Unknown]
  - Urticaria [Unknown]
  - Skin burning sensation [Unknown]

NARRATIVE: CASE EVENT DATE: 20191217
